FAERS Safety Report 5077459-2 (Version None)
Quarter: 2006Q3

REPORT INFORMATION
  Report Type: 
  Country: None (occurrence: None)
  Receive Date: 20060810
  Receipt Date: 20060306
  Transmission Date: 20061208
  Serious: No
  Sender: FDA-Public Use
  Company Number: US-GLAXOSMITHKLINE-A0596292A

PATIENT
  Sex: Male

DRUGS (10)
  1. PAROXETINE HCL [Suspect]
     Dosage: 10MG PER DAY
     Route: 048
     Dates: start: 20040101
  2. HYDROCHLOROTHIAZIDE [Concomitant]
  3. PLAVIX [Concomitant]
  4. ZETIA [Concomitant]
  5. PRILOSEC [Concomitant]
  6. ATENOLOL [Concomitant]
  7. LIPITOR [Concomitant]
  8. KLONOPIN [Concomitant]
  9. FOLIC ACID [Concomitant]
  10. ATIVAN [Concomitant]

REACTIONS (3)
  - ANXIETY [None]
  - IRRITABILITY [None]
  - NERVOUSNESS [None]
